FAERS Safety Report 11576526 (Version 1)
Quarter: 2015Q3

REPORT INFORMATION
  Report Type: Spontaneous
  Country: FR (occurrence: FR)
  Receive Date: 20150930
  Receipt Date: 20150930
  Transmission Date: 20151125
  Serious: Yes (Other)
  Sender: FDA-Public Use
  Company Number: FR-TEVA-595964ISR

PATIENT
  Age: 43 Year
  Sex: Male

DRUGS (3)
  1. TRAMADOL TEVA [Suspect]
     Active Substance: TRAMADOL
     Indication: FRACTURE PAIN
     Dosage: 3 DOSAGE FORMS DAILY; TRAMADOL 100 MG
     Dates: start: 20150825
  2. TRAMADOL TEVA [Suspect]
     Active Substance: TRAMADOL
     Dosage: 3 DOSAGE FORMS DAILY; TRAMADOL 50 MG ALTERNATELY WIITH TRAMADOL 100 MG
  3. TRAMADOL TEVA [Suspect]
     Active Substance: TRAMADOL
     Dosage: 3 DOSAGE FORMS DAILY; TRAMADOL 50 MG
     Dates: start: 201509

REACTIONS (5)
  - Decreased appetite [Unknown]
  - Headache [Unknown]
  - Mouth haemorrhage [Unknown]
  - Dizziness [Unknown]
  - Blood urine present [Unknown]

NARRATIVE: CASE EVENT DATE: 20150917
